FAERS Safety Report 25191433 (Version 1)
Quarter: 2025Q2

REPORT INFORMATION
  Report Type: Spontaneous
  Country: US (occurrence: None)
  Receive Date: 20250411
  Receipt Date: 20250411
  Transmission Date: 20250717
  Serious: Yes (Death, Hospitalization)
  Sender: FDA-CTU
  Company Number: None

PATIENT
  Age: 77 Year
  Sex: Female

DRUGS (1)
  1. CAPECITABINE [Suspect]
     Active Substance: CAPECITABINE
     Dates: start: 20250126, end: 20250322

REACTIONS (3)
  - Blister [None]
  - Hypervolaemia [None]
  - Therapy interrupted [None]

NARRATIVE: CASE EVENT DATE: 20250307
